FAERS Safety Report 16669980 (Version 3)
Quarter: 2019Q4

REPORT INFORMATION
  Report Type: Spontaneous
  Country: US (occurrence: US)
  Receive Date: 20190805
  Receipt Date: 20191212
  Transmission Date: 20200122
  Serious: Yes (Other)
  Sender: FDA-Public Use
  Company Number: US-EDGEWELL PERSONAL CARE, LLC-2072775

PATIENT
  Age: 44 Year
  Sex: Male
  Weight: 108.8 kg

DRUGS (2)
  1. BANANA BOAT SUNCOMFORT SPF 30 [Suspect]
     Active Substance: AVOBENZONE\HOMOSALATE\OCTOCRYLENE\OXYBENZONE
     Indication: PROPHYLAXIS AGAINST SOLAR RADIATION
     Route: 061
     Dates: start: 20190721, end: 20190721
  2. LEXAPRO [Concomitant]
     Active Substance: ESCITALOPRAM OXALATE
     Route: 048

REACTIONS (2)
  - Burns second degree [Recovering/Resolving]
  - Product caught fire [Recovering/Resolving]

NARRATIVE: CASE EVENT DATE: 20190721
